FAERS Safety Report 6646464-4 (Version None)
Quarter: 2010Q1

REPORT INFORMATION
  Report Type: 
  Country: None (occurrence: None)
  Receive Date: 20100317
  Receipt Date: 20100310
  Transmission Date: 20100710
  Serious: Yes (Hospitalization)
  Sender: FDA-Public Use
  Company Number: SPV1-2010-00459

PATIENT
  Age: 45 Year
  Sex: Female

DRUGS (4)
  1. CARBAMAZEPINE [Suspect]
     Indication: TRIGEMINAL NEURALGIA
     Dosage: 200 MG, 3X/DAY;TID
  2. GABAPENTIN [Concomitant]
  3. FLUTICASONE W/SALMETEROL (FLUTICASONE, SALMETEROL) INHALATION GAS [Concomitant]
  4. FLUTICASONE (FLUTICASONE) NASAL SPRAY [Concomitant]

REACTIONS (1)
  - PANCREATITIS [None]
